FAERS Safety Report 6309734-5 (Version None)
Quarter: 2009Q3

REPORT INFORMATION
  Report Type: 
  Country: None (occurrence: None)
  Receive Date: 20090814
  Receipt Date: 20090805
  Transmission Date: 20100115
  Serious: Yes (Hospitalization, Other)
  Sender: FDA-Public Use
  Company Number: PHHY2009MX31201

PATIENT
  Sex: Female

DRUGS (4)
  1. ACLASTA [Suspect]
     Indication: OSTEOPOROSIS
     Dosage: 1 INJECTION PER YEAR
     Dates: start: 20080401
  2. ACLASTA [Suspect]
     Dosage: 1 INJECTION PER YEAR
     Dates: start: 20090729
  3. RIVOTRIL [Concomitant]
     Indication: DEPRESSION
  4. SERTRALINE [Concomitant]
     Indication: DEPRESSION

REACTIONS (6)
  - ARTHRALGIA [None]
  - DIVERTICULUM INTESTINAL [None]
  - GASTROENTERITIS [None]
  - INTESTINAL POLYP [None]
  - IRRITABLE BOWEL SYNDROME [None]
  - PYREXIA [None]
